FAERS Safety Report 5574109-3 (Version None)
Quarter: 2007Q4

REPORT INFORMATION
  Report Type: 
  Country: None (occurrence: None)
  Receive Date: 20071221
  Receipt Date: 20071121
  Transmission Date: 20080405
  Serious: Yes (Hospitalization)
  Sender: FDA-Public Use
  Company Number: 64892

PATIENT
  Sex: Male

DRUGS (5)
  1. IBUPROFEN [Suspect]
     Indication: PAIN
     Dosage: 1DF/ 3/1DAYS/ ORAL
     Route: 048
     Dates: start: 20060201, end: 20060301
  2. DICLOFENAC 50MG [Suspect]
     Indication: PAIN
     Dosage: 50MG/ 3/1DAYS/ ORAL
     Route: 048
     Dates: start: 20060301, end: 20060529
  3. AMLODIPINE [Concomitant]
  4. GLICLAZIDE [Concomitant]
  5. METFORMIN [Concomitant]

REACTIONS (3)
  - ABDOMINAL PAIN UPPER [None]
  - GASTROINTESTINAL HAEMORRHAGE [None]
  - HAEMATEMESIS [None]
